FAERS Safety Report 5836792-4 (Version None)
Quarter: 2008Q3

REPORT INFORMATION
  Report Type: 
  Country: None (occurrence: None)
  Receive Date: 20080805
  Receipt Date: 20080723
  Transmission Date: 20090109
  Serious: Yes (Death)
  Sender: FDA-Public Use
  Company Number: LIT-08-0007

PATIENT
  Age: 66 Year
  Sex: Male
  Weight: 87.9978 kg

DRUGS (1)
  1. LINDANE [Suspect]
     Indication: ACARODERMATITIS
     Dosage: TOPICALLY-NECK TO TOES
     Route: 061

REACTIONS (5)
  - CONVULSION [None]
  - HYPOTENSION [None]
  - HYPOXIC ENCEPHALOPATHY [None]
  - RESPIRATORY ACIDOSIS [None]
  - WRONG TECHNIQUE IN DRUG USAGE PROCESS [None]
